FAERS Safety Report 17002235 (Version 1)
Quarter: 2019Q4

REPORT INFORMATION
  Report Type: Report from Study
  Country: None (occurrence: US)
  Receive Date: 20191106
  Receipt Date: 20191106
  Transmission Date: 20200122
  Serious: Yes (Other)
  Sender: FDA-Public Use
  Company Number: US-ABBVIE-19K-163-2988897-00

PATIENT
  Sex: Male

DRUGS (1)
  1. HUMIRA [Suspect]
     Active Substance: ADALIMUMAB
     Indication: RHEUMATOID ARTHRITIS
     Route: 058

REACTIONS (4)
  - Paralysis [Recovering/Resolving]
  - Coma [Recovering/Resolving]
  - Escherichia infection [Recovering/Resolving]
  - Multiple organ dysfunction syndrome [Recovering/Resolving]

NARRATIVE: CASE EVENT DATE: 2015
